FAERS Safety Report 12935892 (Version 1)
Quarter: 2016Q4

REPORT INFORMATION
  Report Type: Spontaneous
  Country: US (occurrence: US)
  Receive Date: 20161114
  Receipt Date: 20161114
  Transmission Date: 20170207
  Serious: No
  Sender: FDA-Public Use
  Company Number: US-009507513-1610USA010509

PATIENT
  Age: 66 Year
  Sex: Male

DRUGS (5)
  1. LEDIPASVIR (+) SOFOSBUVIR [Interacting]
     Active Substance: LEDIPASVIR\SOFOSBUVIR
     Indication: CHRONIC HEPATITIS C
     Dosage: UNK, 12 WEEK COURSE
  2. REBETOL [Suspect]
     Active Substance: RIBAVIRIN
     Indication: CHRONIC HEPATITIS C
     Dosage: 600 MG, BID, A 12 WEEK COURSE
     Route: 048
  3. WARFARIN [Interacting]
     Active Substance: WARFARIN
     Indication: ATRIAL FIBRILLATION
     Dosage: 42.5-45 MG/WEEK PRIOR TO HCV TREATMENT
  4. WARFARIN [Interacting]
     Active Substance: WARFARIN
     Indication: MITRAL VALVE REPLACEMENT
     Dosage: 75 MG, QW
  5. WARFARIN [Interacting]
     Active Substance: WARFARIN
     Dosage: 55 MG, QW

REACTIONS (1)
  - Drug interaction [Unknown]
